FAERS Safety Report 16844013 (Version 2)
Quarter: 2019Q4

REPORT INFORMATION
  Report Type: Other
  Country: CA (occurrence: CA)
  Receive Date: 20190924
  Receipt Date: 20191022
  Transmission Date: 20200122
  Serious: Yes (Other)
  Sender: FDA-Public Use
  Company Number: CA-APOTEX-2019AP022161

PATIENT
  Sex: Female

DRUGS (1)
  1. TAMIOXIFEN [Suspect]
     Active Substance: TAMOXIFEN
     Indication: BREAST CANCER METASTATIC
     Dosage: UNK
     Route: 048

REACTIONS (3)
  - Drug resistance [Not Recovered/Not Resolved]
  - Metastases to liver [Not Recovered/Not Resolved]
  - Disease progression [Not Recovered/Not Resolved]
